FAERS Safety Report 7620878-8 (Version None)
Quarter: 2011Q3

REPORT INFORMATION
  Report Type: 
  Country: None (occurrence: None)
  Receive Date: 20110719
  Receipt Date: 20110714
  Transmission Date: 20111222
  Serious: Yes (Hospitalization)
  Sender: FDA-Public Use
  Company Number: US-B.I. PHARMACEUTICALS,INC./RIDGEFIELD-2011-BP-15718BP

PATIENT
  Age: 71 Year
  Sex: Male

DRUGS (10)
  1. LIPITOR [Concomitant]
     Dosage: 10 MG
     Route: 048
  2. SYNTHROID [Concomitant]
     Dosage: 75 MCG
     Route: 048
  3. GLIPIZIDE [Concomitant]
     Dosage: 10 MG
     Route: 048
  4. NIASPAN [Concomitant]
     Dosage: 1000 MG
     Route: 048
  5. TRAMADOL HCL [Concomitant]
     Dosage: 100 MG
     Route: 048
  6. PRADAXA [Suspect]
     Indication: ATRIAL FIBRILLATION
     Dosage: 300 MG
     Route: 048
     Dates: start: 20110201, end: 20110612
  7. MULTAQ [Concomitant]
     Dosage: 800 MG
     Route: 048
  8. TRICOR [Concomitant]
     Dosage: 145 MG
     Route: 048
  9. BYSTOLIC [Concomitant]
     Dosage: 10 MG
     Route: 048
  10. METFORMIN HCL [Concomitant]
     Dosage: 1000 MG
     Route: 048

REACTIONS (3)
  - LOWER GASTROINTESTINAL HAEMORRHAGE [None]
  - HAEMATOCHEZIA [None]
  - MELAENA [None]
